FAERS Safety Report 5613495-2 (Version None)
Quarter: 2008Q1

REPORT INFORMATION
  Report Type: 
  Country: None (occurrence: None)
  Receive Date: 20080129
  Receipt Date: 20080115
  Transmission Date: 20080703
  Serious: Yes (Hospitalization, Disabling, Other)
  Sender: FDA-Public Use
  Company Number: 2007-03873

PATIENT
  Age: 50 Year
  Sex: Male
  Weight: 52 kg

DRUGS (6)
  1. VELCADE [Suspect]
     Indication: MULTIPLE MYELOMA
     Dosage: 1.30 MG/M2, IV BOLUS
     Route: 040
     Dates: start: 20041109, end: 20050303
  2. MORPHINE SULFATE [Concomitant]
  3. TRAMADOL HCL [Concomitant]
  4. LACTULOSE [Concomitant]
  5. ENOXAPARIN SODIUM [Concomitant]
  6. DEXAMETHASONE TAB [Concomitant]

REACTIONS (9)
  - ANAEMIA [None]
  - BRONCHITIS [None]
  - DISEASE PROGRESSION [None]
  - GENERAL PHYSICAL HEALTH DETERIORATION [None]
  - HYPOTENSION [None]
  - HYPOTONIA [None]
  - INFECTION [None]
  - MUSCULOSKELETAL CHEST PAIN [None]
  - TRANSAMINASES INCREASED [None]
